FAERS Safety Report 12550012 (Version 2)
Quarter: 2017Q1

REPORT INFORMATION
  Report Type: Report from Study
  Country: JP (occurrence: JP)
  Receive Date: 20160712
  Receipt Date: 20170203
  Transmission Date: 20170428
  Serious: Yes (Other)
  Sender: FDA-Public Use
  Company Number: JP-JNJFOC-20160704691

PATIENT
  Age: 65 Year
  Sex: Female
  Weight: 58 kg

DRUGS (5)
  1. YONDELIS [Suspect]
     Active Substance: TRABECTEDIN
     Indication: ENDOMETRIAL STROMAL SARCOMA
     Dosage: 24-HOUR INFUSION, CYCLE 1
     Route: 042
     Dates: start: 20160530
  2. YONDELIS [Suspect]
     Active Substance: TRABECTEDIN
     Indication: ENDOMETRIAL STROMAL SARCOMA
     Dosage: 24-HOUR INFUSION, CYCLE 2
     Route: 042
     Dates: start: 20160712
  3. YONDELIS [Suspect]
     Active Substance: TRABECTEDIN
     Indication: ENDOMETRIAL STROMAL SARCOMA
     Dosage: 24-HOUR INFUSION, CYCLE 3
     Route: 042
     Dates: start: 20160823
  4. DEXAMETHASONE. [Concomitant]
     Active Substance: DEXAMETHASONE
     Indication: PREMEDICATION
     Route: 065
     Dates: start: 20160530
  5. YONDELIS [Suspect]
     Active Substance: TRABECTEDIN
     Indication: ENDOMETRIAL STROMAL SARCOMA
     Dosage: 24-HOUR INFUSION, CYCLE 4
     Route: 042
     Dates: start: 20161004

REACTIONS (7)
  - Alanine aminotransferase increased [Unknown]
  - Aspartate aminotransferase increased [Unknown]
  - Platelet count decreased [Recovered/Resolved]
  - Blood creatine phosphokinase increased [Unknown]
  - Anaemia [Unknown]
  - White blood cell count decreased [Recovered/Resolved]
  - Neutrophil count decreased [Unknown]

NARRATIVE: CASE EVENT DATE: 2016
